FAERS Safety Report 6742186-X (Version None)
Quarter: 2010Q2

REPORT INFORMATION
  Report Type: 
  Country: None (occurrence: None)
  Receive Date: 20100526
  Receipt Date: 20100516
  Transmission Date: 20101027
  Serious: Yes (Death)
  Sender: FDA-Public Use
  Company Number: EG-SANOFI-AVENTIS-2010SA028160

PATIENT
  Age: 57 Year
  Sex: Male

DRUGS (2)
  1. INSULIN GLARGINE [Suspect]
     Indication: DIABETES MELLITUS
     Route: 058
     Dates: start: 20090401
  2. INSULIN GLARGINE [Suspect]
     Route: 058
     Dates: end: 20100301

REACTIONS (1)
  - HEPATITIS [None]
